FAERS Safety Report 24443471 (Version 2)
Quarter: 2025Q2

REPORT INFORMATION
  Report Type: Spontaneous
  Country: MY (occurrence: MY)
  Receive Date: 20241016
  Receipt Date: 20250428
  Transmission Date: 20250717
  Serious: Yes (Hospitalization, Other)
  Sender: AUROBINDO
  Company Number: MY-MLMSERVICE-20240927-PI210537-00246-1

PATIENT
  Age: 50 Year
  Sex: Male

DRUGS (4)
  1. OLANZAPINE [Interacting]
     Active Substance: OLANZAPINE
     Indication: Bipolar disorder
     Route: 065
  2. OLANZAPINE [Interacting]
     Active Substance: OLANZAPINE
     Dosage: 5 MILLIGRAM, ONCE A DAY
     Route: 065
  3. LITHIUM [Interacting]
     Active Substance: LITHIUM
     Indication: Bipolar disorder
     Route: 065
  4. TRIHEXYPHENIDYL [Concomitant]
     Active Substance: TRIHEXYPHENIDYL
     Indication: Bipolar disorder
     Route: 065

REACTIONS (3)
  - Neuroleptic malignant syndrome [Recovered/Resolved]
  - Drug interaction [Recovered/Resolved]
  - Toxicity to various agents [Recovered/Resolved]
